FAERS Safety Report 16844931 (Version 2)
Quarter: 2019Q4

REPORT INFORMATION
  Report Type: Spontaneous
  Country: US (occurrence: US)
  Receive Date: 20190924
  Receipt Date: 20191111
  Transmission Date: 20200122
  Serious: No
  Sender: FDA-Public Use
  Company Number: US-PFIZER INC-2019408014

PATIENT
  Age: 58 Year
  Sex: Male
  Weight: 108.9 kg

DRUGS (1)
  1. TESTOSTERONE CIPIONATE [Suspect]
     Active Substance: TESTOSTERONE
     Indication: BLOOD TESTOSTERONE DECREASED
     Dosage: 1 ML, [200MG/ML-3/4 OF BOTTLE INJECTED EVERY 2 WEEKS:ADMINISTERED IN LEFT BUTTOCK]
     Dates: end: 201909

REACTIONS (4)
  - Product quality issue [Unknown]
  - Fatigue [Unknown]
  - Feeling abnormal [Recovering/Resolving]
  - Energy increased [Unknown]

NARRATIVE: CASE EVENT DATE: 201909
